FAERS Safety Report 15800223 (Version 1)
Quarter: 2019Q1

REPORT INFORMATION
  Report Type: Report from Study
  Country: US (occurrence: US)
  Receive Date: 20190108
  Receipt Date: 20190108
  Transmission Date: 20190417
  Serious: Yes (Death)
  Sender: FDA-Public Use
  Company Number: US-MYLANLABS-2019M1000978

PATIENT
  Sex: Female
  Weight: 51.25 kg

DRUGS (3)
  1. IPRATROPIUM [Suspect]
     Active Substance: IPRATROPIUM
     Indication: PRODUCT USED FOR UNKNOWN INDICATION
     Dosage: UNK
     Route: 055
     Dates: start: 201809
  2. PREDNISONE. [Suspect]
     Active Substance: PREDNISONE
     Indication: PRODUCT USED FOR UNKNOWN INDICATION
     Dosage: 20 MILLIGRAM, Q2D (20 MG EVERY OTHER DAY )
     Route: 048
     Dates: start: 201809
  3. TOBI [Suspect]
     Active Substance: TOBRAMYCIN
     Indication: PNEUMONIA
     Dosage: 300 MILLIGRAM, BID (EVERY 12 HOURS FOR 28 DAYS ON AND 28 DAYS OFF IN AUGUST 2018)
     Route: 055
     Dates: start: 201809

REACTIONS (2)
  - Product administration error [Unknown]
  - Failure to thrive [Fatal]
